FAERS Safety Report 13362537 (Version 1)
Quarter: 2017Q1

REPORT INFORMATION
  Report Type: Spontaneous
  Country: US (occurrence: US)
  Receive Date: 20170322
  Receipt Date: 20170322
  Transmission Date: 20170429
  Serious: Yes (Hospitalization)
  Sender: FDA-Public Use
  Company Number: None

PATIENT
  Age: 33 Year
  Sex: Male

DRUGS (1)
  1. SENSIPAR [Suspect]
     Active Substance: CINACALCET HYDROCHLORIDE
     Indication: DEVICE DEPENDENCE
     Dosage: 2 TABLETS EVERY EVENING ORAL
     Route: 048
     Dates: start: 20160323

REACTIONS (1)
  - Pneumonia [None]
